FAERS Safety Report 5295677-5 (Version None)
Quarter: 2007Q2

REPORT INFORMATION
  Report Type: 
  Country: None (occurrence: None)
  Receive Date: 20070410
  Receipt Date: 20070410
  Transmission Date: 20071010
  Serious: Yes (Other)
  Sender: FDA-Public Use
  Company Number: None

PATIENT
  Sex: Female
  Weight: 99.6 kg

DRUGS (2)
  1. DASATINIB   50 TO 70MG [Suspect]
     Indication: ACUTE LYMPHOCYTIC LEUKAEMIA
     Dosage: ONCE - TWICE DAILY  PO
     Route: 048
     Dates: start: 20060717, end: 20070301
  2. DASATINIB   50 TO 70MG [Suspect]
     Indication: CHROMOSOME ANALYSIS ABNORMAL
     Dosage: ONCE - TWICE DAILY  PO
     Route: 048
     Dates: start: 20060717, end: 20070301

REACTIONS (4)
  - ACUTE LYMPHOCYTIC LEUKAEMIA [None]
  - CARDIAC FAILURE CONGESTIVE [None]
  - CONDITION AGGRAVATED [None]
  - PULMONARY HYPERTENSION [None]
